FAERS Safety Report 21702895 (Version 1)
Quarter: 2022Q4

REPORT INFORMATION
  Report Type: Other
  Country: ET (occurrence: ET)
  Receive Date: 20221209
  Receipt Date: 20221209
  Transmission Date: 20230112
  Serious: Yes (Death, Hospitalization, Other)
  Sender: FDA-Public Use
  Company Number: ET-Bion-010878

PATIENT
  Age: 39 Year
  Sex: Female

DRUGS (5)
  1. AZITHROMYCIN [Suspect]
     Active Substance: AZITHROMYCIN
     Indication: Pneumonia bacterial
  2. SULBACTAM/CEFTRIAX [Concomitant]
     Indication: Pneumonia bacterial
  3. DEXAMETHASONE [Concomitant]
     Active Substance: DEXAMETHASONE
     Indication: COVID-19
  4. VANCOMYCIN [Concomitant]
     Active Substance: VANCOMYCIN
     Indication: Pneumonia bacterial
  5. PREDNISOLONE [Concomitant]
     Active Substance: PREDNISOLONE
     Indication: Angle closure glaucoma

REACTIONS (1)
  - Rhinocerebral mucormycosis [Fatal]
